FAERS Safety Report 6373511-X (Version None)
Quarter: 2009Q3

REPORT INFORMATION
  Report Type: 
  Country: None (occurrence: None)
  Receive Date: 20090924
  Receipt Date: 20090219
  Transmission Date: 20100115
  Serious: No
  Sender: FDA-Public Use
  Company Number: US-ASTRAZENECA-2009UW04690

PATIENT
  Age: 37 Year
  Sex: Female
  Weight: 72.6 kg

DRUGS (5)
  1. SEROQUEL [Suspect]
     Indication: SLEEP DISORDER
     Route: 048
     Dates: start: 20000101
  2. CONCERTA [Concomitant]
     Indication: SOMNOLENCE
  3. TRAZODONE HCL [Concomitant]
     Indication: SLEEP DISORDER
  4. TRAZODONE HCL [Concomitant]
     Indication: PAIN
  5. TRAMADOL HCL [Concomitant]
     Indication: PAIN
     Dosage: 100-200 MG

REACTIONS (3)
  - HYPERPHAGIA [None]
  - LETHARGY [None]
  - SOMNOLENCE [None]
